FAERS Safety Report 21880719 (Version 2)
Quarter: 2023Q1

REPORT INFORMATION
  Report Type: Spontaneous
  Country: TW (occurrence: TW)
  Receive Date: 20230118
  Receipt Date: 20230208
  Transmission Date: 20230418
  Serious: Yes (Life-Threatening)
  Sender: FDA-Public Use
  Company Number: TW-BAYER-2023A007572

PATIENT
  Age: 8 Decade
  Sex: Male

DRUGS (1)
  1. XOFIGO [Suspect]
     Active Substance: RADIUM RA-223 DICHLORIDE
     Dosage: TOTAL OF FOUR INJECTIONS
     Dates: start: 20220824, end: 20221130

REACTIONS (3)
  - Metastases to bone [None]
  - Nerve compression [None]
  - Paralysis [None]
